FAERS Safety Report 5348587-9 (Version None)
Quarter: 2007Q2

REPORT INFORMATION
  Report Type: 
  Country: None (occurrence: None)
  Receive Date: 20070605
  Receipt Date: 20070523
  Transmission Date: 20071010
  Serious: Yes (Hospitalization)
  Sender: FDA-Public Use
  Company Number: FABR-12010

PATIENT
  Age: 52 Year
  Sex: Male
  Weight: 51 kg

DRUGS (7)
  1. FABRAZYME [Suspect]
     Indication: FABRY'S DISEASE
     Dosage: 1 MG/KG Q2WKS IV
     Route: 042
     Dates: start: 20060119
  2. ASPIRIN [Concomitant]
  3. CALCITRIOL [Concomitant]
  4. DECADRON [Concomitant]
  5. DUONEBS [Concomitant]
  6. LEVAQUIN [Concomitant]
  7. NICOTINE [Concomitant]

REACTIONS (3)
  - BLOOD CREATININE INCREASED [None]
  - CHRONIC OBSTRUCTIVE PULMONARY DISEASE [None]
  - MYOCARDIAL INFARCTION [None]
